FAERS Safety Report 7035295-1 (Version None)
Quarter: 2010Q4

REPORT INFORMATION
  Report Type: 
  Country: None (occurrence: None)
  Receive Date: 20101008
  Receipt Date: 20100927
  Transmission Date: 20110411
  Serious: Yes (Hospitalization)
  Sender: FDA-Public Use
  Company Number: B0676775A

PATIENT
  Age: 54 Year
  Sex: Female
  Weight: 84 kg

DRUGS (3)
  1. AVANDIA [Suspect]
     Route: 048
     Dates: start: 20050101
  2. AVANDAMET [Suspect]
     Route: 048
  3. PERINDOPRIL ERBUMINE [Concomitant]

REACTIONS (1)
  - SILENT MYOCARDIAL INFARCTION [None]
